FAERS Safety Report 7898965-9 (Version None)
Quarter: 2011Q4

REPORT INFORMATION
  Report Type: 
  Country: None (occurrence: None)
  Receive Date: 20111107
  Receipt Date: 20111101
  Transmission Date: 20120403
  Serious: Yes (Death)
  Sender: FDA-Public Use
  Company Number: JP-ASTELLAS-2011JP007859

PATIENT
  Age: 76 Year
  Sex: Male
  Weight: 64.25 kg

DRUGS (5)
  1. FUNGUARD [Suspect]
     Indication: ASPERGILLUS TEST
     Route: 065
  2. STARASID [Concomitant]
     Indication: PLATELET COUNT DECREASED
  3. STARASID [Concomitant]
     Indication: ANAEMIA
     Dosage: 100 G, UNKNOWN/D
     Route: 048
  4. ANALGESICS [Concomitant]
     Indication: PAIN
     Route: 065
  5. MEROPENEM [Concomitant]
     Indication: PNEUMONIA
     Dosage: 2 G, UNKNOWN/D
     Route: 065

REACTIONS (1)
  - HEPATIC FUNCTION ABNORMAL [None]
